FAERS Safety Report 5114285-X (Version None)
Quarter: 2006Q3

REPORT INFORMATION
  Report Type: 
  Country: None (occurrence: None)
  Receive Date: 20060925
  Receipt Date: 20051025
  Transmission Date: 20061208
  Serious: Yes (Other)
  Sender: FDA-Public Use
  Company Number: JP-ABBOTT-05P-087-0315559-00

PATIENT
  Sex: Male

DRUGS (14)
  1. NORVIR [Suspect]
     Indication: HIV INFECTION
     Route: 048
     Dates: start: 19991101, end: 20000403
  2. NORVIR [Suspect]
     Route: 048
     Dates: start: 20040116
  3. KALETRA [Suspect]
     Indication: HIV INFECTION
     Route: 048
     Dates: start: 20031017, end: 20040116
  4. DIDANOSINE [Suspect]
     Indication: HIV INFECTION
     Route: 048
     Dates: start: 19941212, end: 19970502
  5. DIDANOSINE [Suspect]
     Route: 048
     Dates: start: 19990514, end: 20010401
  6. STAVUDINE [Suspect]
     Indication: HIV INFECTION
     Route: 048
     Dates: start: 19971018, end: 20031016
  7. ABACAVIR [Suspect]
     Indication: HIV INFECTION
     Route: 048
     Dates: start: 20000403
  8. EFAVIRENZ [Suspect]
     Indication: HIV INFECTION
     Route: 048
     Dates: start: 20000403, end: 20031016
  9. ATAZANAVIR [Suspect]
     Indication: HIV INFECTION
     Route: 048
     Dates: start: 20040116
  10. TENOFOVIR [Suspect]
     Indication: HIV INFECTION
     Route: 048
     Dates: start: 20031017
  11. DIDANOSINE [Suspect]
     Indication: HIV INFECTION
     Route: 048
     Dates: start: 20010516, end: 20031016
  12. DIDANOSINE [Suspect]
     Route: 048
     Dates: start: 20010401, end: 20010516
  13. FREEZE-DRIED HUMAN BLOOD-COAGULATION FACTOR IX [Concomitant]
     Indication: FACTOR IX DEFICIENCY
     Dosage: 4-6 TIMES/MONTH
     Route: 042
     Dates: start: 20040401
  14. COAGULATION FACTOR IV [Concomitant]
     Indication: DRUG USE FOR UNKNOWN INDICATION
     Dates: start: 19961101

REACTIONS (9)
  - ALANINE AMINOTRANSFERASE ABNORMAL [None]
  - BLOOD LACTIC ACID INCREASED [None]
  - FACIAL WASTING [None]
  - HEPATIC CIRRHOSIS [None]
  - HEPATOSPLENOMEGALY [None]
  - HYPERBILIRUBINAEMIA [None]
  - LIPOATROPHY [None]
  - LIPODYSTROPHY ACQUIRED [None]
  - LIPOHYPERTROPHY [None]
